FAERS Safety Report 24406079 (Version 2)
Quarter: 2024Q4

REPORT INFORMATION
  Report Type: Spontaneous
  Country: US (occurrence: US)
  Receive Date: 20241007
  Receipt Date: 20241021
  Transmission Date: 20250115
  Serious: Yes (Hospitalization, Other)
  Sender: ALEXION PHARMACEUTICALS
  Company Number: US-ASTRAZENECA-202409GLO005748US

PATIENT
  Age: 31 Year

DRUGS (4)
  1. QUETIAPINE FUMARATE [Interacting]
     Active Substance: QUETIAPINE FUMARATE
     Indication: Agitation
     Dosage: UNK UNK, PRN
  2. LINEZOLID [Interacting]
     Active Substance: LINEZOLID
     Route: 065
  3. OLANZAPINE [Interacting]
     Active Substance: OLANZAPINE
     Indication: Agitation
     Dosage: UNK, PRN
     Route: 065
  4. HALOPERIDOL [Interacting]
     Active Substance: HALOPERIDOL
     Indication: Agitation
     Dosage: UNK, PRN
     Route: 065

REACTIONS (7)
  - Neuroleptic malignant syndrome [Unknown]
  - Drug interaction [Unknown]
  - Acute kidney injury [Unknown]
  - Iron deficiency [Unknown]
  - Agitation [Unknown]
  - Respiratory alkalosis [Unknown]
  - Off label use [Unknown]
